FAERS Safety Report 4332216-7 (Version None)
Quarter: 2004Q1

REPORT INFORMATION
  Report Type: 
  Country: None (occurrence: None)
  Receive Date: 20040331
  Receipt Date: 20040318
  Transmission Date: 20041129
  Serious: Yes (Hospitalization)
  Sender: FDA-Public Use
  Company Number: 2004019762

PATIENT
  Age: 77 Year
  Sex: Male
  Weight: 95 kg

DRUGS (5)
  1. REACTINE (CETIRIZINE) [Suspect]
     Indication: UPPER RESPIRATORY TRACT INFECTION
     Dosage: ORAL
     Route: 048
     Dates: start: 20040121, end: 20040121
  2. ATORVASTATIN (ATORVASTATIN) [Suspect]
     Indication: CORONARY ARTERY DISEASE
     Dosage: (DAILY), ORAL
     Route: 048
     Dates: start: 19990916
  3. ETHANOL (ETHANOL) [Suspect]
     Indication: ILL-DEFINED DISORDER
     Dosage: ORAL
     Route: 048
     Dates: start: 20040121, end: 20040121
  4. MULTIVITAMIN [Concomitant]
  5. CYANOCOBALAMIN (CYANOCOBALAMIN) [Concomitant]

REACTIONS (1)
  - RHABDOMYOLYSIS [None]
